FAERS Safety Report 4843025-4 (Version None)
Quarter: 2005Q4

REPORT INFORMATION
  Report Type: 
  Country: None (occurrence: None)
  Receive Date: 20051201
  Receipt Date: 20051125
  Transmission Date: 20060501
  Serious: Yes (Hospitalization)
  Sender: FDA-Public Use
  Company Number: FR-ROCHE-426231

PATIENT
  Age: 6 Year
  Sex: Female
  Weight: 40 kg

DRUGS (1)
  1. ROCEPHIN [Suspect]
     Indication: MENINGITIS
     Dosage: DRUG REPORTED AS 2 GRAM/40ML FORMULATION REPORTED AS INJECTABLE SOLUTION DOSAGE REGIMEN REPORTED AS+
     Route: 042
     Dates: start: 20050916, end: 20051003

REACTIONS (2)
  - CHOLELITHIASIS [None]
  - PANCREATITIS [None]
